FAERS Safety Report 12611493 (Version 1)
Quarter: 2016Q3

REPORT INFORMATION
  Report Type: Spontaneous
  Country: US (occurrence: US)
  Receive Date: 20160801
  Receipt Date: 20160801
  Transmission Date: 20161109
  Serious: Yes (Other)
  Sender: FDA-Public Use
  Company Number: US-PURDUE-USA-2016-0132520

PATIENT
  Age: 58 Year
  Sex: Female

DRUGS (1)
  1. HYSINGLA ER [Suspect]
     Active Substance: HYDROCODONE BITARTRATE
     Indication: PAIN
     Dosage: 30 MG, Q24H
     Route: 048
     Dates: start: 201606, end: 201606

REACTIONS (6)
  - Pain [Unknown]
  - Paralysis [Recovered/Resolved]
  - Drug ineffective [Recovered/Resolved]
  - Abasia [Recovered/Resolved]
  - Dysstasia [Unknown]
  - Gait disturbance [Unknown]

NARRATIVE: CASE EVENT DATE: 201606
